FAERS Safety Report 4635469-0 (Version None)
Quarter: 2005Q2

REPORT INFORMATION
  Report Type: 
  Country: None (occurrence: None)
  Receive Date: 20050414
  Receipt Date: 20050404
  Transmission Date: 20051028
  Serious: Yes (Other)
  Sender: FDA-Public Use
  Company Number: 2005054398

PATIENT
  Age: 57 Year
  Sex: Female
  Weight: 58.9676 kg

DRUGS (7)
  1. LIPITOR [Suspect]
     Indication: BLOOD CHOLESTEROL INCREASED
     Dosage: 10 MG (10 MG, 1 IN 1 D) ORAL
     Route: 048
     Dates: start: 20040201
  2. ZETIA [Suspect]
     Indication: LOW DENSITY LIPOPROTEIN INCREASED
     Dosage: 10 MG (10 MG, 1 IN 1 D); ORAL
     Route: 048
     Dates: start: 20041101
  3. ACETYL SALICYLIC ACID USP BAT [Concomitant]
  4. CLOPIDOGREL BISULFATE [Concomitant]
  5. RAMIPRIL [Concomitant]
  6. METOPROLOL SUCCINATE [Concomitant]
  7. FOLIC ACID [Concomitant]

REACTIONS (8)
  - ALANINE AMINOTRANSFERASE INCREASED [None]
  - ALOPECIA [None]
  - ASPARTATE AMINOTRANSFERASE INCREASED [None]
  - BILE DUCT STONE [None]
  - BLOOD BILIRUBIN INCREASED [None]
  - GALLBLADDER DISORDER [None]
  - HEPATIC ENZYME INCREASED [None]
  - WEIGHT DECREASED [None]
